FAERS Safety Report 5652488-6 (Version None)
Quarter: 2008Q1

REPORT INFORMATION
  Report Type: 
  Country: None (occurrence: None)
  Receive Date: 20080306
  Receipt Date: 20080225
  Transmission Date: 20080703
  Serious: Yes (Death)
  Sender: FDA-Public Use
  Company Number: US-JNJFOC-20080205748

PATIENT
  Sex: Female
  Weight: 43.09 kg

DRUGS (2)
  1. FENTANYL [Suspect]
     Indication: GASTRIC CANCER
     Route: 062
  2. FENTANYL [Suspect]
     Indication: CERVIX CARCINOMA
     Route: 062

REACTIONS (2)
  - CERVIX CARCINOMA [None]
  - GASTRIC CANCER [None]
